FAERS Safety Report 10909862 (Version 1)
Quarter: 2015Q1

REPORT INFORMATION
  Report Type: Spontaneous
  Country: US (occurrence: US)
  Receive Date: 20150312
  Receipt Date: 20150312
  Transmission Date: 20150721
  Serious: No
  Sender: FDA-Public Use
  Company Number: US-SA-2014SA075729

PATIENT
  Age: 71 Year
  Sex: Male

DRUGS (2)
  1. NASACORT ALLERGY 24HR [Suspect]
     Active Substance: TRIAMCINOLONE ACETONIDE
     Indication: HYPERSENSITIVITY
     Dosage: BETWEEN 2-4?SPRAYS
     Route: 065
  2. ZYRTEC-D /USA/ [Concomitant]

REACTIONS (2)
  - Therapeutic response decreased [Unknown]
  - Underdose [Unknown]
